FAERS Safety Report 16233199 (Version 1)
Quarter: 2019Q2

REPORT INFORMATION
  Report Type: Spontaneous
  Country: US (occurrence: US)
  Receive Date: 20190424
  Receipt Date: 20190424
  Transmission Date: 20190711
  Serious: No
  Sender: FDA-Public Use
  Company Number: US-ASTRAZENECA-2019SE50082

PATIENT
  Age: 16305 Day
  Sex: Female
  Weight: 109.8 kg

DRUGS (3)
  1. BYDUREON BCISE [Suspect]
     Active Substance: EXENATIDE
     Indication: TYPE 2 DIABETES MELLITUS
     Route: 058
     Dates: start: 20190327
  2. BYETTA [Suspect]
     Active Substance: EXENATIDE
     Indication: TYPE 2 DIABETES MELLITUS
     Dosage: UNKNOWN DOSE, TWO TIMES A DAY
     Route: 058
     Dates: start: 2017, end: 201801
  3. JARDIA [Concomitant]
     Indication: DIABETES MELLITUS
     Dosage: DOSE AND FREQUENCY UNKNOWN
     Route: 065

REACTIONS (3)
  - Injection site erythema [Recovering/Resolving]
  - Device malfunction [Unknown]
  - Headache [Unknown]

NARRATIVE: CASE EVENT DATE: 20190327
